FAERS Safety Report 8758987 (Version 3)
Quarter: 2012Q4

REPORT INFORMATION
  Report Type: 
  Country: US (occurrence: US)
  Receive Date: 20120829
  Receipt Date: 20120918
  Transmission Date: 20130627
  Serious: Yes (Hospitalization)
  Sender: FDA-Public Use
  Company Number: US-BIOGENIDEC-2012BI032967

PATIENT
  Age: 49 Year
  Sex: Male

DRUGS (5)
  1. TYSABRI [Suspect]
     Indication: MULTIPLE SCLEROSIS
     Route: 042
     Dates: start: 201201
  2. LOSARTAN [Concomitant]
     Indication: BLOOD CHOLESTEROL INCREASED
  3. TYLENOL [Concomitant]
     Indication: PREMEDICATION
  4. BENADRYL [Concomitant]
     Indication: PREMEDICATION
  5. COUMADIN 5MG  6 DAYS A WEEK AND 2.5MG ON THE SEVENTH DAY [Concomitant]
     Indication: THROMBOSIS
     Dates: start: 2004

REACTIONS (9)
  - Urinary tract infection [Unknown]
  - Cerebrovascular accident [Unknown]
  - Hypolipidaemia [Unknown]
  - Hypokalaemia [Unknown]
  - White blood cell count decreased [Unknown]
  - Hyperlipidaemia [Unknown]
  - Gastrooesophageal reflux disease [Unknown]
  - Cerebral infarction [Recovered/Resolved]
  - Multiple sclerosis relapse [Recovered/Resolved]
